FAERS Safety Report 24707122 (Version 1)
Quarter: 2024Q4

REPORT INFORMATION
  Report Type: Spontaneous
  Country: DK (occurrence: DK)
  Receive Date: 20241206
  Receipt Date: 20241206
  Transmission Date: 20250115
  Serious: Yes (Other)
  Sender: PFIZER
  Company Number: None

PATIENT
  Age: 29 Year
  Sex: Female

DRUGS (8)
  1. RIMEGEPANT [Suspect]
     Active Substance: RIMEGEPANT
     Indication: Migraine prophylaxis
     Dosage: 75 MG, ALTERNATE DAY. ORAL LYOPHILISATE
     Dates: start: 20231122
  2. BOTOX [Concomitant]
     Active Substance: ONABOTULINUMTOXINA
     Indication: Blepharospasm
     Dosage: DOSAGE: UNKNOWN DOSE ADMINISTERED EVERY OTHER MONTH
     Dates: start: 2018
  3. PULMICORT TURBUHALER [Concomitant]
     Active Substance: BUDESONIDE
     Indication: Asthma
     Dosage: 400 UG, 2X/DAY
     Dates: start: 20221215
  4. ALVESCO [Concomitant]
     Active Substance: CICLESONIDE
     Indication: Asthma
     Dosage: DOSAGE: 2 PUFFS AT LUNCH AND 1 PUFF IN THE EVENING
     Dates: start: 20221216
  5. DESOGESTREL [Concomitant]
     Active Substance: DESOGESTREL
     Indication: Contraception
     Dosage: 75 UG, 1X/DAY
     Dates: start: 202009
  6. METOPROLOL [Concomitant]
     Active Substance: METOPROLOL
     Indication: Heart rate irregular
     Dosage: 25 MG, 2X/DAY
     Dates: start: 20201210
  7. IBUPROFEN [Concomitant]
     Active Substance: IBUPROFEN
     Indication: Pain
     Dosage: DOSAGE: 400 MG AS NECESSARY, BUT MAX 4 TIMES A DAY
     Dates: start: 2014
  8. ACETAMINOPHEN [Concomitant]
     Active Substance: ACETAMINOPHEN
     Indication: Pain
     Dosage: DOSAGE: 1000 MG AS NECESSARY, BUT MAX 4 TIMES A DAY.
     Dates: start: 2014

REACTIONS (3)
  - Haematochezia [Not Recovered/Not Resolved]
  - Constipation [Not Recovered/Not Resolved]
  - Rectal lesion [Not Recovered/Not Resolved]

NARRATIVE: CASE EVENT DATE: 20231201
